FAERS Safety Report 6639144-2 (Version None)
Quarter: 2010Q1

REPORT INFORMATION
  Report Type: 
  Country: None (occurrence: None)
  Receive Date: 20100312
  Receipt Date: 20100303
  Transmission Date: 20100710
  Serious: Yes (Other)
  Sender: FDA-Public Use
  Company Number: TCI2010A00748

PATIENT
  Age: 72 Year
  Sex: Male

DRUGS (4)
  1. ACTOS [Suspect]
     Indication: DIABETES MELLITUS
     Dosage: 15 MG (15 MG, 1 D), PER ORAL
     Route: 048
     Dates: start: 20000101, end: 20100201
  2. AMARYL [Concomitant]
  3. LIVALO (ITAVASTATIN CALCIUM) [Concomitant]
  4. ADOAIR (FLUTICASONE PROPIONATE, SALMETEROL XINAFOATE) [Concomitant]

REACTIONS (3)
  - DYSPHONIA [None]
  - INTERSTITIAL LUNG DISEASE [None]
  - PYREXIA [None]
